FAERS Safety Report 13580808 (Version 1)
Quarter: 2017Q2

REPORT INFORMATION
  Report Type: Report from Study
  Country: US (occurrence: US)
  Receive Date: 20170525
  Receipt Date: 20170525
  Transmission Date: 20170830
  Serious: Yes (Hospitalization, Other)
  Sender: FDA-Public Use
  Company Number: PHHY2016US053653

PATIENT

DRUGS (9)
  1. TOBI PODHALER [Suspect]
     Active Substance: TOBRAMYCIN
     Indication: CYSTIC FIBROSIS
     Dosage: 2 DF (112), QD
     Route: 055
     Dates: start: 20160117, end: 20160318
  2. TOBI PODHALER [Suspect]
     Active Substance: TOBRAMYCIN
     Indication: PSEUDOMONAS INFECTION
  3. CAYSTON [Suspect]
     Active Substance: AZTREONAM
     Dosage: 3 DF (75), QD
     Route: 065
     Dates: start: 20160707, end: 20160804
  4. CAYSTON [Suspect]
     Active Substance: AZTREONAM
     Dosage: 3 DF (75), QD
     Route: 065
     Dates: start: 20170305, end: 20170403
  5. CAYSTON [Suspect]
     Active Substance: AZTREONAM
     Dosage: 3 DF (75), QD
     Route: 065
     Dates: start: 20170101, end: 20170129
  6. CAYSTON [Suspect]
     Active Substance: AZTREONAM
     Indication: PRODUCT USED FOR UNKNOWN INDICATION
     Dosage: 3 DF (75), QD
     Route: 065
     Dates: start: 20160512, end: 20160609
  7. CAYSTON [Suspect]
     Active Substance: AZTREONAM
     Dosage: 3 DF (75), QD
     Route: 065
     Dates: start: 20161006, end: 20161103
  8. CAYSTON [Suspect]
     Active Substance: AZTREONAM
     Dosage: 3 DF (75), QD
     Route: 065
     Dates: start: 20161106, end: 20161117
  9. CAYSTON [Suspect]
     Active Substance: AZTREONAM
     Dosage: 3 DF (75), QD
     Route: 065
     Dates: start: 20170508

REACTIONS (12)
  - Infective pulmonary exacerbation of cystic fibrosis [Recovered/Resolved]
  - Infective pulmonary exacerbation of cystic fibrosis [Recovered/Resolved]
  - Pancreatic cyst [Recovered/Resolved]
  - Chest pain [Recovered/Resolved]
  - Ear pain [Recovered/Resolved]
  - Pancreatic cyst [Recovered/Resolved]
  - Infective pulmonary exacerbation of cystic fibrosis [Recovered/Resolved]
  - Bronchopulmonary aspergillosis allergic [Recovered/Resolved]
  - Infective pulmonary exacerbation of cystic fibrosis [Recovered/Resolved]
  - Infective pulmonary exacerbation of cystic fibrosis [Unknown]
  - Arthralgia [Recovered/Resolved]
  - Bronchiectasis [Recovered/Resolved]

NARRATIVE: CASE EVENT DATE: 20160318
